FAERS Safety Report 4700004-5 (Version None)
Quarter: 2005Q2

REPORT INFORMATION
  Report Type: 
  Country: None (occurrence: None)
  Receive Date: 20050623
  Receipt Date: 20050609
  Transmission Date: 20051028
  Serious: Yes (Death)
  Sender: FDA-Public Use
  Company Number: 200313201BCC

PATIENT
  Age: 76 Year
  Sex: Male

DRUGS (15)
  1. ALEVE [Suspect]
     Indication: DEMENTIA ALZHEIMER'S TYPE
     Dosage: BID, ORAL
     Route: 048
     Dates: start: 20020202, end: 20020326
  2. ALEVE [Suspect]
     Indication: PROPHYLAXIS
     Dosage: BID, ORAL
     Route: 048
     Dates: start: 20020202, end: 20020326
  3. ALEVE [Suspect]
     Indication: DEMENTIA ALZHEIMER'S TYPE
     Dosage: BID, ORAL
     Route: 048
     Dates: start: 20020401, end: 20020401
  4. ALEVE [Suspect]
     Indication: PROPHYLAXIS
     Dosage: BID, ORAL
     Route: 048
     Dates: start: 20020401, end: 20020401
  5. ALEVE [Suspect]
     Indication: DEMENTIA ALZHEIMER'S TYPE
     Dosage: BID, ORAL
     Route: 048
     Dates: start: 20020601, end: 20020801
  6. ALEVE [Suspect]
     Indication: PROPHYLAXIS
     Dosage: BID, ORAL
     Route: 048
     Dates: start: 20020601, end: 20020801
  7. ALEVE [Suspect]
     Indication: DEMENTIA ALZHEIMER'S TYPE
     Dosage: BID, ORAL
     Route: 048
     Dates: start: 20020801, end: 20021222
  8. ALEVE [Suspect]
     Indication: PROPHYLAXIS
     Dosage: BID, ORAL
     Route: 048
     Dates: start: 20020801, end: 20021222
  9. ASPIRIN [Concomitant]
  10. TYLENOL [Concomitant]
  11. TICLID [Concomitant]
  12. LIPITOR [Concomitant]
  13. NTG (NITROGLYCERIN) [Concomitant]
  14. CHONDROITIN [Concomitant]
  15. GLUCOSAMINE [Concomitant]

REACTIONS (6)
  - HAEMOGLOBIN DECREASED [None]
  - HERNIA REPAIR [None]
  - MALAISE [None]
  - MYOCARDIAL INFARCTION [None]
  - PAIN [None]
  - UPPER RESPIRATORY TRACT INFECTION [None]
